FAERS Safety Report 4522229-4 (Version None)
Quarter: 2004Q4

REPORT INFORMATION
  Report Type: 
  Country: None (occurrence: None)
  Receive Date: 20041206
  Receipt Date: 20041124
  Transmission Date: 20050328
  Serious: Yes (Death)
  Sender: FDA-Public Use
  Company Number: STA-AE-04-MTX-567

PATIENT
  Age: 80 Year
  Sex: Female

DRUGS (29)
  1. METHOTREXATE [Suspect]
     Indication: RHEUMATOID ARTHRITIS
     Dosage: ORAL
     Route: 048
     Dates: start: 19871023, end: 20010401
  2. METHOTREXATE [Suspect]
     Indication: RHEUMATOID ARTHRITIS
     Dosage: 5 MG 1X PER 1 WK, ORAL
     Route: 048
     Dates: start: 20010401, end: 20020701
  3. METHOTREXATE [Suspect]
     Indication: RHEUMATOID ARTHRITIS
     Dosage: 2.5 MG 1X PER 1 WK, ORAL
     Route: 048
     Dates: start: 20020701, end: 20030301
  4. METHOTREXATE [Suspect]
     Indication: RHEUMATOID ARTHRITIS
     Dosage: 2.5 MG 1X PER 2 WK, ORAL
     Route: 048
     Dates: start: 20030301, end: 20030101
  5. ARAVA [Suspect]
     Indication: RHEUMATOID ARTHRITIS
     Dosage: ^20^ 1/2 DAILY
     Dates: end: 20011018
  6. ARAVA [Suspect]
     Indication: RHEUMATOID ARTHRITIS
     Dates: start: 20020117, end: 20020718
  7. ARAVA [Suspect]
     Indication: RHEUMATOID ARTHRITIS
     Dates: start: 20011018, end: 20020117
  8. PREDNISONE [Suspect]
     Indication: RHEUMATOID ARTHRITIS
     Dosage: ^5^ DAILY
  9. REMICADE [Suspect]
     Indication: RHEUMATOID ARTHRITIS
     Dosage: 3 VIALS EVERY 8 WEEKS, INTRAVENOUS
     Route: 042
     Dates: start: 20020816
  10. FOLIC ACID [Concomitant]
  11. AMITRIPTYLINE HCL [Concomitant]
  12. VITAMIN B12 [Concomitant]
  13. TYLENOL [Concomitant]
  14. NIFEDIPINE [Concomitant]
  15. COZAAR [Concomitant]
  16. K-DUR 10 [Concomitant]
  17. SYNTHROID [Concomitant]
  18. PEPCID AC [Concomitant]
  19. BENADRYL (AMMONIUM CHLORIDE/CHLOROFORM/DIPHENHYDRAMINE HYDROCHLORIDE/M [Concomitant]
  20. VITAMIN B1 TAB [Concomitant]
  21. ASPIRIN [Concomitant]
  22. ADALAT [Concomitant]
  23. PROZAC [Concomitant]
  24. NITROGLYCERIN [Concomitant]
  25. MENEST [Concomitant]
  26. MIRTAZAPINE [Concomitant]
  27. FIBERCON (CALCIUM POLYCARBOPHIL) [Concomitant]
  28. EFFEXOR [Concomitant]
  29. CITRUCEL (METHYLCELLULOSE) [Concomitant]

REACTIONS (1)
  - CARDIO-RESPIRATORY ARREST [None]
